FAERS Safety Report 7821813-X (Version None)
Quarter: 2011Q4

REPORT INFORMATION
  Report Type: 
  Country: None (occurrence: None)
  Receive Date: 20111018
  Receipt Date: 20101214
  Transmission Date: 20120403
  Serious: No
  Sender: FDA-Public Use
  Company Number: US-ASTRAZENECA-2010SE50052

PATIENT
  Age: 16 Year
  Sex: Male
  Weight: 72.6 kg

DRUGS (5)
  1. ALBUTEROL [Concomitant]
     Indication: ASTHMA
     Dosage: UNKNOWN DOSE AS REQUIRED
     Route: 055
  2. ANTI-OXIDENT VITAMINS [Concomitant]
     Dosage: UNKNOWN DOSE DAILY
     Route: 048
  3. SINGULAIR [Concomitant]
     Indication: MULTIPLE ALLERGIES
     Dosage: UNKNOWN DOSE DAILY
     Route: 048
  4. SYMBICORT [Suspect]
     Indication: ASTHMA
     Dosage: 160/4.5 UG 2 PUFFS BID
     Route: 055
     Dates: start: 20090101
  5. ZYRTEC [Concomitant]
     Indication: MULTIPLE ALLERGIES
     Dosage: UNKNOWN DOSE DAILY
     Route: 048

REACTIONS (3)
  - DRUG INEFFECTIVE [None]
  - DYSPNOEA [None]
  - CHEST DISCOMFORT [None]
